FAERS Safety Report 13987464 (Version 2)
Quarter: 2020Q3

REPORT INFORMATION
  Report Type: Report from Study
  Country: KR (occurrence: KR)
  Receive Date: 20170919
  Receipt Date: 20171004
  Transmission Date: 20201104
  Serious: Yes (Hospitalization, Other)
  Sender: FDA-Public Use
  Company Number: KR-PFIZER INC-2017366755

PATIENT
  Age: 63 Year
  Sex: Male

DRUGS (26)
  1. MEDI4736 [Suspect]
     Active Substance: DURVALUMAB
     Dosage: 1500 MG, CYCLIC, EVERY 3 WEEKS
     Route: 042
     Dates: start: 20170830, end: 20170830
  2. TREMELIMUMAB. [Suspect]
     Active Substance: TREMELIMUMAB
     Indication: NON-SMALL CELL LUNG CANCER
     Dosage: 75 MG, CYCLIC, EVERY 3 WEEKS
     Route: 042
     Dates: start: 20170809, end: 20170809
  3. CARBOPLATIN. [Suspect]
     Active Substance: CARBOPLATIN
     Dosage: 4.0 AUC
     Route: 042
     Dates: start: 20170921, end: 20170921
  4. CODEINE [Concomitant]
     Active Substance: CODEINE
     Dosage: 40 MG, 4X/DAY
     Route: 048
     Dates: start: 20170728
  5. MEGACE F [Concomitant]
     Indication: DECREASED APPETITE
     Dosage: 5 ML, 1X/DAY
     Route: 048
     Dates: start: 20170725, end: 20170807
  6. TRANSAMIN [Concomitant]
     Active Substance: TRANEXAMIC ACID
     Indication: HAEMOPTYSIS
     Dosage: 250 MG, 3X/DAY
     Route: 048
     Dates: start: 20170725, end: 20170807
  7. MAGNESIUM OXIDE. [Concomitant]
     Active Substance: MAGNESIUM OXIDE
     Indication: CONSTIPATION
     Dosage: 250.0MG AS REQUIRED
     Route: 048
     Dates: start: 20170802, end: 20170809
  8. ERDOS [Concomitant]
     Indication: PRODUCTIVE COUGH
     Dosage: 300 MG, 3X/DAY
     Route: 048
     Dates: start: 20170725, end: 20170807
  9. SYLCON [Concomitant]
     Indication: CONSTIPATION
     Dosage: 625.0MG AS REQUIRED
     Route: 048
     Dates: start: 20170808, end: 20170809
  10. PENIRAMIN [Concomitant]
     Indication: ALLERGIC TRANSFUSION REACTION
     Dosage: 4.0MG ONCE/SINGLE ADMINISTRATION
     Route: 042
     Dates: start: 20170808, end: 20170808
  11. MEDI4736 [Suspect]
     Active Substance: DURVALUMAB
     Indication: NON-SMALL CELL LUNG CANCER
     Dosage: 1500 MG, CYCLIC, EVERY 3 WEEKS
     Route: 042
     Dates: start: 20170809, end: 20170809
  12. GALACTOSE/LACTOSE ANHYDROUS/LACTULOSE [Concomitant]
     Indication: CONSTIPATION
  13. GEMCITABINE. [Suspect]
     Active Substance: GEMCITABINE
     Indication: NON-SMALL CELL LUNG CANCER
     Dosage: 1000 MG/M2, UNK
     Route: 042
     Dates: start: 20170809, end: 20170809
  14. GEMCITABINE. [Suspect]
     Active Substance: GEMCITABINE
     Dosage: 1000 MG/M2, UNK
     Route: 042
     Dates: start: 20170817, end: 20170817
  15. GEMCITABINE. [Suspect]
     Active Substance: GEMCITABINE
     Dosage: 1000 MG/M2, UNK
     Route: 042
     Dates: start: 20170830, end: 20170830
  16. MEDI4736 [Suspect]
     Active Substance: DURVALUMAB
     Dosage: 1500 MG, CYCLIC, EVERY 3 WEEKS
     Route: 042
     Dates: start: 20170921, end: 20170921
  17. TREMELIMUMAB. [Suspect]
     Active Substance: TREMELIMUMAB
     Dosage: 75 MG, CYCLIC, EVERY 3 WEEKS
     Route: 042
     Dates: start: 20170830, end: 20170830
  18. CARBOPLATIN. [Suspect]
     Active Substance: CARBOPLATIN
     Indication: NON-SMALL CELL LUNG CANCER
     Dosage: 5.0 AUC
     Route: 042
     Dates: start: 20170809, end: 20170809
  19. CARBOPLATIN. [Suspect]
     Active Substance: CARBOPLATIN
     Dosage: 5.0 AUC
     Route: 042
     Dates: start: 20170830, end: 20170830
  20. CODEINE [Concomitant]
     Active Substance: CODEINE
     Indication: PRODUCTIVE COUGH
     Dosage: 20 MG, 3X/DAY
     Route: 048
     Dates: start: 20170725, end: 20170727
  21. GEMCITABINE. [Suspect]
     Active Substance: GEMCITABINE
     Dosage: 750 MG/M2, UNK
     Route: 042
     Dates: start: 20170907, end: 20170907
  22. TREMELIMUMAB. [Suspect]
     Active Substance: TREMELIMUMAB
     Dosage: 75 MG, CYCLIC, EVERY 3 WEEKS
     Route: 042
     Dates: start: 20170921, end: 20170921
  23. DUPHALAC EASY [Concomitant]
     Indication: CONSTIPATION
     Dosage: 15.0ML AS REQUIRED
     Route: 048
     Dates: start: 20170808, end: 20170809
  24. GEMCITABINE. [Suspect]
     Active Substance: GEMCITABINE
     Dosage: 750 MG/M2, UNK
     Route: 042
     Dates: start: 20170921, end: 20170921
  25. RHINATIOL [Concomitant]
     Indication: PRODUCTIVE COUGH
     Dosage: 500 MG, 3X/DAY
     Route: 048
     Dates: start: 20170802
  26. MOTILITONE [Concomitant]
     Active Substance: HERBALS
     Indication: GASTRITIS

REACTIONS (1)
  - Pneumonia [Recovered/Resolved]

NARRATIVE: CASE EVENT DATE: 20170810
